FAERS Safety Report 16699788 (Version 2)
Quarter: 2019Q3

REPORT INFORMATION
  Report Type: Spontaneous
  Country: US (occurrence: US)
  Receive Date: 20190813
  Receipt Date: 20190823
  Transmission Date: 20191004
  Serious: Yes (Other)
  Sender: FDA-Public Use
  Company Number: US-TEVA-2019-US-1090588

PATIENT
  Age: 55 Year
  Sex: Male
  Weight: 62 kg

DRUGS (14)
  1. PYRIMETHAMINE [Suspect]
     Active Substance: PYRIMETHAMINE
     Indication: ENCEPHALITIS
     Dosage: SUSPENSION, LOADING DOSE
     Route: 048
     Dates: start: 2017
  2. PYRIMETHAMINE [Suspect]
     Active Substance: PYRIMETHAMINE
     Dosage: SUSPENSION
     Route: 048
     Dates: start: 2017
  3. DEXAMETHASONE. [Concomitant]
     Active Substance: DEXAMETHASONE
     Indication: CEREBRAL TOXOPLASMOSIS
     Route: 042
     Dates: start: 2017
  4. DEXAMETHASONE. [Concomitant]
     Active Substance: DEXAMETHASONE
     Indication: ENCEPHALITIS
  5. LEUCOVORIN. [Concomitant]
     Active Substance: LEUCOVORIN
     Indication: CEREBRAL TOXOPLASMOSIS
     Route: 048
     Dates: start: 2017
  6. ATOVAQUONE. [Concomitant]
     Active Substance: ATOVAQUONE
     Indication: CEREBRAL TOXOPLASMOSIS
     Dosage: SUSPENSION, HIGH-DOSE
     Route: 048
     Dates: start: 2017
  7. CLINDAMYCIN. [Concomitant]
     Active Substance: CLINDAMYCIN
     Indication: ENCEPHALITIS
  8. DAPSONE. [Suspect]
     Active Substance: DAPSONE
     Indication: ANTIBIOTIC PROPHYLAXIS
     Route: 065
     Dates: start: 2017
  9. ATOVAQUONE. [Concomitant]
     Active Substance: ATOVAQUONE
     Indication: ENCEPHALITIS
  10. LEUCOVORIN. [Concomitant]
     Active Substance: LEUCOVORIN
     Indication: ENCEPHALITIS
     Dosage: DOSE INCREASED
     Route: 048
     Dates: start: 2017
  11. COTRIMOXAZOLE [Suspect]
     Active Substance: SULFAMETHOXAZOLE\TRIMETHOPRIM
     Indication: CEREBRAL TOXOPLASMOSIS
     Route: 042
     Dates: start: 2017
  12. PYRIMETHAMINE [Suspect]
     Active Substance: PYRIMETHAMINE
     Indication: CEREBRAL TOXOPLASMOSIS
     Route: 065
     Dates: start: 2017
  13. COTRIMOXAZOLE [Suspect]
     Active Substance: SULFAMETHOXAZOLE\TRIMETHOPRIM
     Indication: ENCEPHALITIS
  14. CLINDAMYCIN. [Concomitant]
     Active Substance: CLINDAMYCIN
     Indication: CEREBRAL TOXOPLASMOSIS
     Dosage: 600 MG EVERY 6 HOURS
     Route: 042
     Dates: start: 2017

REACTIONS (4)
  - Rash erythematous [Unknown]
  - Leukopenia [Unknown]
  - Thrombocytopenia [Unknown]
  - Agranulocytosis [Unknown]

NARRATIVE: CASE EVENT DATE: 2017
